FAERS Safety Report 20206028 (Version 1)
Quarter: 2021Q4

REPORT INFORMATION
  Report Type: Spontaneous
  Country: US (occurrence: None)
  Receive Date: 20211217
  Receipt Date: 20211217
  Transmission Date: 20220303
  Serious: Yes (Disabling)
  Sender: FDA-Public Use
  Company Number: None

PATIENT
  Age: 73 Year
  Sex: Female
  Weight: 70.2 kg

DRUGS (33)
  1. LEVOCETIRIZINE [Suspect]
     Active Substance: LEVOCETIRIZINE
     Indication: Rhinitis allergic
     Dosage: FREQUENCY : AT BEDTIME;?
     Route: 048
  2. ATIVAN [Concomitant]
     Active Substance: LORAZEPAM
  3. TEMAZEPAM [Concomitant]
     Active Substance: TEMAZEPAM
  4. Azelastine HCL nasal spray 0.1% [Concomitant]
  5. IPRATROPIUM BROMIDE [Concomitant]
  6. ALBUTEROL SULFATE [Concomitant]
  7. Albuterol aerosol inhaler [Concomitant]
  8. METHYLPREDNISOLONE [Concomitant]
     Active Substance: METHYLPREDNISOLONE
  9. LEVOFLOXACIN [Concomitant]
     Active Substance: LEVOFLOXACIN
  10. VALACYCLOVIR HYDROCHLORIDE [Concomitant]
     Active Substance: VALACYCLOVIR HYDROCHLORIDE
  11. Hydrocodon Homatropin [Concomitant]
  12. BENZONATATE [Concomitant]
     Active Substance: BENZONATATE
  13. FLUCONAZOLE [Concomitant]
     Active Substance: FLUCONAZOLE
  14. AMLODIPINE BESYLATE [Concomitant]
     Active Substance: AMLODIPINE BESYLATE
  15. PANTOPRAZOLE [Concomitant]
     Active Substance: PANTOPRAZOLE
  16. MELATONIN [Concomitant]
     Active Substance: MELATONIN
  17. 50+ Women Multivitamin [Concomitant]
  18. VITAMIN C [Concomitant]
     Active Substance: ASCORBIC ACID
  19. VITAMIN D [Concomitant]
     Active Substance: VITAMIN D NOS
  20. VITAMIN E [Concomitant]
     Active Substance: .ALPHA.-TOCOPHEROL
  21. MENAQUINONE 6 [Concomitant]
     Active Substance: MENAQUINONE 6
  22. CALCIUM [Concomitant]
     Active Substance: CALCIUM
  23. MAGNESIUM [Concomitant]
     Active Substance: MAGNESIUM
  24. POTASSIUM [Concomitant]
     Active Substance: POTASSIUM
  25. ZINC [Concomitant]
     Active Substance: ZINC
  26. SELENIUM [Concomitant]
     Active Substance: SELENIUM
  27. COENZYME Q10 [Concomitant]
     Active Substance: DIETARY SUPPLEMENT\UBIDECARENONE
  28. Omega 3 Cod Liver Oil [Concomitant]
  29. ACETYLCYSTEINE [Concomitant]
     Active Substance: ACETYLCYSTEINE
  30. CURCUMIN [Concomitant]
     Active Substance: CURCUMIN
  31. Turmeric Extract [Concomitant]
  32. PROBIOTICS NOS [Concomitant]
     Active Substance: PROBIOTICS NOS
  33. UNSPECIFIED INGREDIENT [Concomitant]
     Active Substance: UNSPECIFIED INGREDIENT

REACTIONS (12)
  - Arthralgia [None]
  - Joint stiffness [None]
  - Myalgia [None]
  - Balance disorder [None]
  - Fall [None]
  - Arthralgia [None]
  - Renal impairment [None]
  - Renal pain [None]
  - Urine output decreased [None]
  - Back pain [None]
  - Pain in extremity [None]
  - Mobility decreased [None]

NARRATIVE: CASE EVENT DATE: 20210806
